FAERS Safety Report 16569591 (Version 1)
Quarter: 2019Q3

REPORT INFORMATION
  Report Type: Spontaneous
  Country: US (occurrence: US)
  Receive Date: 20190715
  Receipt Date: 20190715
  Transmission Date: 20191004
  Serious: Yes (Hospitalization)
  Sender: FDA-Public Use
  Company Number: US-HORIZON-KRY-0489-2019

PATIENT
  Age: 70 Year
  Sex: Male

DRUGS (5)
  1. CLARITIN [Concomitant]
     Active Substance: LORATADINE
     Indication: PREMEDICATION
  2. KRYSTEXXA [Suspect]
     Active Substance: PEGLOTICASE
     Indication: GOUT
     Dosage: 8 MG Q2WEEKS
     Route: 042
     Dates: start: 20190604, end: 20190709
  3. SOLU-MEDROL [Concomitant]
     Active Substance: METHYLPREDNISOLONE SODIUM SUCCINATE
     Indication: PREMEDICATION
     Dosage: 125 MG
     Route: 042
  4. ZYRTEC [Concomitant]
     Active Substance: CETIRIZINE HYDROCHLORIDE
     Indication: PREMEDICATION
  5. TYLENOL [Concomitant]
     Active Substance: ACETAMINOPHEN
     Indication: PREMEDICATION

REACTIONS (5)
  - Inappropriate schedule of product administration [Unknown]
  - Chest pain [Recovered/Resolved]
  - Dysphagia [Recovered/Resolved]
  - Pruritus [Recovered/Resolved]
  - Therapeutic response decreased [Unknown]

NARRATIVE: CASE EVENT DATE: 20190703
